FAERS Safety Report 9820110 (Version 1)
Quarter: 2013Q4

REPORT INFORMATION
  Report Type: Spontaneous
  Country: US (occurrence: None)
  Receive Date: 20131021
  Receipt Date: 20131021
  Transmission Date: 20140711
  Serious: Yes (Hospitalization)
  Sender: FDA-Public Use
  Company Number: ALL1-2013-01989

PATIENT
  Age: 11 Month
  Sex: Male

DRUGS (1)
  1. VYVANSE [Suspect]
     Indication: PRODUCT USED FOR UNKNOWN INDICATION
     Dosage: 50 MG, INFANT INGESTED 1-2 CAPSULES, ORAL
     Dates: start: 20130321, end: 20130321

REACTIONS (3)
  - Accidental exposure to product by child [None]
  - Tachycardia [None]
  - Psychomotor hyperactivity [None]
